FAERS Safety Report 13752644 (Version 3)
Quarter: 2017Q4

REPORT INFORMATION
  Report Type: Report from Study
  Country: US (occurrence: US)
  Receive Date: 20170713
  Receipt Date: 20171003
  Transmission Date: 20180320
  Serious: Yes (Death, Hospitalization)
  Sender: FDA-Public Use
  Company Number: US-ACTELION-A-NJ2017-152320

PATIENT
  Age: 65 Year
  Sex: Female
  Weight: 49.89 kg

DRUGS (2)
  1. REVATIO [Concomitant]
     Active Substance: SILDENAFIL CITRATE
  2. VELETRI [Suspect]
     Active Substance: EPOPROSTENOL
     Indication: PULMONARY HYPERTENSION
     Dosage: 23 NG/KG, PER MIN
     Route: 042
     Dates: start: 20170227

REACTIONS (4)
  - Abdominal mass [Unknown]
  - Death [Fatal]
  - Acute right ventricular failure [Recovering/Resolving]
  - Colon cancer [Unknown]

NARRATIVE: CASE EVENT DATE: 20170927
